FAERS Safety Report 15534883 (Version 1)
Quarter: 2018Q4

REPORT INFORMATION
  Report Type: Spontaneous
  Country: US (occurrence: US)
  Receive Date: 20181022
  Receipt Date: 20181022
  Transmission Date: 20190205
  Serious: No
  Sender: FDA-Public Use
  Company Number: US-TEVA-2017-US-828200

PATIENT

DRUGS (1)
  1. MICONAZOLE. [Suspect]
     Active Substance: MICONAZOLE

REACTIONS (2)
  - Administration site pain [Unknown]
  - Device defective [Unknown]
